FAERS Safety Report 12073455 (Version 6)
Quarter: 2017Q3

REPORT INFORMATION
  Report Type: Report from Study
  Country: US (occurrence: US)
  Receive Date: 20160212
  Receipt Date: 20170918
  Transmission Date: 20171127
  Serious: Yes (Hospitalization, Other)
  Sender: FDA-Public Use
  Company Number: US-ACTELION-A-NJ2016-131181

PATIENT
  Age: 67 Year
  Sex: Male
  Weight: 51.7 kg

DRUGS (4)
  1. REMODULIN [Suspect]
     Active Substance: TREPROSTINIL
     Indication: PRODUCT USED FOR UNKNOWN INDICATION
     Route: 065
  2. OPSUMIT [Suspect]
     Active Substance: MACITENTAN
     Indication: PULMONARY ARTERIAL HYPERTENSION
     Dosage: 10 MG, QD
     Route: 048
     Dates: start: 20150630
  3. WARFARIN [Concomitant]
     Active Substance: WARFARIN
  4. REVATIO [Concomitant]
     Active Substance: SILDENAFIL CITRATE

REACTIONS (11)
  - Renal failure [Recovering/Resolving]
  - Arteriovenous shunt operation [Unknown]
  - Pulmonary oedema [Unknown]
  - Dialysis [Not Recovered/Not Resolved]
  - Sinusitis [Unknown]
  - Vomiting [Unknown]
  - Secretion discharge [Unknown]
  - Diarrhoea [Unknown]
  - Dyspnoea [Unknown]
  - Urinary tract infection [Unknown]
  - Peripheral swelling [Unknown]
